FAERS Safety Report 6651607-2 (Version None)
Quarter: 2010Q1

REPORT INFORMATION
  Report Type: 
  Country: None (occurrence: None)
  Receive Date: 20100322
  Receipt Date: 20100309
  Transmission Date: 20100710
  Serious: No
  Sender: FDA-Public Use
  Company Number: 008505

PATIENT
  Sex: Male

DRUGS (1)
  1. LEVETIRACETAM [Suspect]
     Dosage: (500 MG)
     Dates: start: 20090629, end: 20090904

REACTIONS (2)
  - BRAIN NEOPLASM [None]
  - NEOPLASM PROGRESSION [None]
